FAERS Safety Report 17725541 (Version 1)
Quarter: 2020Q2

REPORT INFORMATION
  Report Type: Spontaneous
  Country: US (occurrence: US)
  Receive Date: 20200429
  Receipt Date: 20200429
  Transmission Date: 20200714
  Serious: Yes (Other)
  Sender: FDA-Public Use
  Company Number: US-ROCHE-2587959

PATIENT
  Sex: Female

DRUGS (2)
  1. OFEV [Suspect]
     Active Substance: NINTEDANIB
     Indication: IDIOPATHIC PULMONARY FIBROSIS
     Route: 048
     Dates: start: 20190702
  2. ESBRIET [Suspect]
     Active Substance: PIRFENIDONE
     Indication: IDIOPATHIC PULMONARY FIBROSIS
     Route: 048
     Dates: start: 20190218, end: 20190308

REACTIONS (8)
  - Anxiety [Unknown]
  - Diarrhoea [Not Recovered/Not Resolved]
  - Faeces discoloured [Unknown]
  - Headache [Unknown]
  - Heart valve incompetence [Unknown]
  - Productive cough [Unknown]
  - Fatigue [Unknown]
  - Dyspnoea [Unknown]
